FAERS Safety Report 16348116 (Version 2)
Quarter: 2019Q2

REPORT INFORMATION
  Report Type: Spontaneous
  Country: DE (occurrence: DE)
  Receive Date: 20190523
  Receipt Date: 20190528
  Transmission Date: 20190711
  Serious: Yes (Other)
  Sender: FDA-Public Use
  Company Number: DE-PROVELL PHARMACEUTICALS-2067359

PATIENT
  Sex: Female

DRUGS (2)
  1. EUTHYROX [Suspect]
     Active Substance: LEVOTHYROXINE SODIUM
     Indication: AUTOIMMUNE THYROIDITIS
  2. SARTAN [Suspect]
     Active Substance: LOSARTAN POTASSIUM

REACTIONS (4)
  - Gastritis erosive [Recovered/Resolved]
  - Productive cough [None]
  - Cough [None]
  - Nasopharyngitis [None]
